FAERS Safety Report 6299149-0 (Version None)
Quarter: 2009Q3

REPORT INFORMATION
  Report Type: 
  Country: None (occurrence: None)
  Receive Date: 20090806
  Receipt Date: 20090730
  Transmission Date: 20100115
  Serious: Yes (Other)
  Sender: FDA-Public Use
  Company Number: CA-ASTRAZENECA-2009UW21627

PATIENT
  Age: 77 Year
  Sex: Female
  Weight: 81.6 kg

DRUGS (5)
  1. ATACAND HCT [Suspect]
     Route: 048
  2. ATACAND [Suspect]
     Route: 048
  3. ATACAND [Suspect]
     Route: 048
  4. ALLOPURINOL [Concomitant]
  5. COLCHICINE [Concomitant]

REACTIONS (4)
  - ASTHENIA [None]
  - HEART RATE INCREASED [None]
  - HYPOTENSION [None]
  - PALLOR [None]
